FAERS Safety Report 8358346-0 (Version None)
Quarter: 2012Q2

REPORT INFORMATION
  Report Type: 
  Country: None (occurrence: None)
  Receive Date: 20120514
  Receipt Date: 20110427
  Transmission Date: 20120825
  Serious: No
  Sender: FDA-Public Use
  Company Number: US-ALEXION-A201100608

PATIENT
  Sex: Female

DRUGS (8)
  1. COENZYME Q10 [Concomitant]
     Dosage: UNK
  2. CALCIUM WITH VITAMIN D [Concomitant]
     Dosage: UNK
  3. ATIVAN [Concomitant]
     Dosage: UNK
  4. FOSAMAX [Concomitant]
     Indication: OSTEOPENIA
     Dosage: UNK
  5. TYLENOL (CAPLET) [Concomitant]
     Dosage: UNK
  6. SOLIRIS [Suspect]
     Dosage: 900 MG, Q2W
     Route: 042
     Dates: start: 20100823
  7. LIPITOR [Concomitant]
     Indication: BLOOD CHOLESTEROL INCREASED
     Dosage: UNK
  8. SOLIRIS [Suspect]
     Indication: PAROXYSMAL NOCTURNAL HAEMOGLOBINURIA
     Dosage: 600 MG, QW
     Route: 042
     Dates: start: 20100727, end: 20100822

REACTIONS (4)
  - WEIGHT DECREASED [None]
  - URINARY TRACT INFECTION [None]
  - ABDOMINAL DISCOMFORT [None]
  - DECREASED APPETITE [None]
